FAERS Safety Report 8860939 (Version 1)
Quarter: 2012Q4

REPORT INFORMATION
  Report Type: 
  Country: US (occurrence: US)
  Receive Date: 20121025
  Receipt Date: 20121025
  Transmission Date: 20130627
  Serious: No
  Sender: FDA-Public Use
  Company Number: US-AMGEN-USASP2012015185

PATIENT
  Age: 33 Year
  Sex: Female
  Weight: 131.52 kg

DRUGS (12)
  1. ENBREL [Suspect]
     Indication: PRODUCT USED FOR UNKNOWN INDICATION
     Dosage: 50 mg, qwk
  2. FLONASE [Concomitant]
  3. CLARITIN                           /00413701/ [Concomitant]
     Dosage: 10 mg, UNK
  4. VIVELLE-DOT [Concomitant]
     Dosage: 0.025 mg, UNK
  5. XANAX [Concomitant]
     Dosage: 1 mg, UNK
  6. LORAZEPAM [Concomitant]
     Dosage: 1 mg, UNK
  7. CELEBREX [Concomitant]
     Dosage: 200 mg, UNK
  8. SPIRONOLACTON [Concomitant]
     Dosage: 25 mg, UNK
  9. MULTIVITAMIN                       /00097801/ [Concomitant]
  10. GLUCOSAMINE + CHONDROITIN          /01430901/ [Concomitant]
  11. CALCIUM + VITAMIN D                /01483701/ [Concomitant]
  12. CITALOPRAM [Concomitant]
     Dosage: 40 mg, UNK

REACTIONS (4)
  - Sinusitis [Recovered/Resolved]
  - Injection site erythema [Not Recovered/Not Resolved]
  - Injection site swelling [Not Recovered/Not Resolved]
  - Injection site pruritus [Not Recovered/Not Resolved]
